FAERS Safety Report 8840484 (Version 1)
Quarter: 2012Q4

REPORT INFORMATION
  Report Type: 
  Country: US (occurrence: US)
  Receive Date: 20121015
  Receipt Date: 20121015
  Transmission Date: 20130627
  Serious: Yes (Death, Other)
  Sender: FDA-Public Use
  Company Number: US-ELI_LILLY_AND_COMPANY-US201210000494

PATIENT
  Age: 81 Year
  Sex: Male

DRUGS (1)
  1. ZYPREXA [Suspect]
     Dosage: 7.5 mg, qd
     Dates: start: 2001

REACTIONS (4)
  - Myocardial infarction [Fatal]
  - General physical health deterioration [Unknown]
  - Dementia [Unknown]
  - Diabetes mellitus [Unknown]
